FAERS Safety Report 8223836-8 (Version None)
Quarter: 2012Q1

REPORT INFORMATION
  Report Type: 
  Country: None (occurrence: None)
  Receive Date: 20120321
  Receipt Date: 20120312
  Transmission Date: 20120608
  Serious: Yes (Other)
  Sender: FDA-Public Use
  Company Number: CA-JNJFOC-20120306199

PATIENT
  Sex: Male
  Weight: 91.4 kg

DRUGS (6)
  1. DICLOFENAC SODIUM [Concomitant]
     Indication: PSORIATIC ARTHROPATHY
     Route: 065
  2. REMICADE [Suspect]
     Route: 042
     Dates: start: 20060421
  3. PERINDOPRIL ERBUMINE [Concomitant]
     Indication: HYPERTENSION
     Route: 065
  4. FOLIC ACID [Concomitant]
     Route: 065
  5. METHOTREXATE [Concomitant]
     Indication: PSORIATIC ARTHROPATHY
     Route: 048
  6. REMICADE [Suspect]
     Indication: PSORIATIC ARTHROPATHY
     Dosage: 51ST INFUSION
     Route: 042
     Dates: start: 20120312

REACTIONS (2)
  - CARDIAC OPERATION [None]
  - DYSPNOEA [None]
